FAERS Safety Report 5578585-1 (Version None)
Quarter: 2007Q4

REPORT INFORMATION
  Report Type: 
  Country: None (occurrence: None)
  Receive Date: 20071227
  Receipt Date: 20071213
  Transmission Date: 20080405
  Serious: Yes (Other)
  Sender: FDA-Public Use
  Company Number: OSCN-NO-0604S-0105

PATIENT
  Age: 47 Year
  Sex: Female

DRUGS (1)
  1. OMNISCAN [Suspect]
     Indication: DRUG USE FOR UNKNOWN INDICATION
     Dosage: 30 ML, SINGLE DOSE, I.V.
     Route: 042
     Dates: start: 20050817, end: 20050817

REACTIONS (5)
  - DYSURIA [None]
  - MUSCLE SPASMS [None]
  - NEPHROGENIC SYSTEMIC FIBROSIS [None]
  - ORAL FUNGAL INFECTION [None]
  - WOUND [None]
